FAERS Safety Report 23569027 (Version 1)
Quarter: 2024Q1

REPORT INFORMATION
  Report Type: Report from Study
  Country: US (occurrence: US)
  Receive Date: 20240227
  Receipt Date: 20240227
  Transmission Date: 20240410
  Serious: No
  Sender: FDA-Public Use
  Company Number: US-ORG100014127-2023001048

PATIENT
  Age: 66 Year
  Sex: Male

DRUGS (3)
  1. METOPIRONE [Suspect]
     Active Substance: METYRAPONE
     Indication: Hypothalamic pituitary adrenal axis suppression
     Dosage: 250 MG THREE TIMES DAILY
     Route: 048
     Dates: start: 20230928, end: 20231027
  2. Phenytoin 50 mg chew tablets [Concomitant]
     Indication: Product used for unknown indication
  3. Testosterone 1% (50mg) GEL 5GM PK [Concomitant]
     Indication: Product used for unknown indication

REACTIONS (2)
  - Gastrointestinal disorder [Recovered/Resolved]
  - Off label use [Unknown]

NARRATIVE: CASE EVENT DATE: 20230928
